FAERS Safety Report 4790314-8 (Version None)
Quarter: 2005Q4

REPORT INFORMATION
  Report Type: 
  Country: None (occurrence: None)
  Receive Date: 20051005
  Receipt Date: 20051005
  Transmission Date: 20060501
  Serious: Yes (Life-Threatening, Hospitalization)
  Sender: FDA-Public Use
  Company Number: None

PATIENT
  Age: 55 Year
  Sex: Female
  Weight: 66.8 kg

DRUGS (8)
  1. CARBOPLATIN [Suspect]
     Indication: BREAST CANCER
     Dosage: IV
     Route: 042
     Dates: start: 20040714
  2. PACLITAXEL [Concomitant]
  3. FLUOXETINE [Concomitant]
  4. LORAZEPAM [Concomitant]
  5. ENALAPRIL [Concomitant]
  6. BENADRYL [Concomitant]
  7. DECADRON [Concomitant]
  8. CIMETIDINE [Concomitant]

REACTIONS (10)
  - AGITATION [None]
  - BRONCHOSPASM [None]
  - ERYTHEMA [None]
  - FACE OEDEMA [None]
  - HYPOXIA [None]
  - INFUSION RELATED REACTION [None]
  - PARAESTHESIA [None]
  - PRURITUS [None]
  - RECTAL TENESMUS [None]
  - TREMOR [None]
